FAERS Safety Report 6211565-1 (Version None)
Quarter: 2009Q2

REPORT INFORMATION
  Report Type: 
  Country: None (occurrence: None)
  Receive Date: 20090528
  Receipt Date: 20090522
  Transmission Date: 20091009
  Serious: Yes (Death)
  Sender: FDA-Public Use
  Company Number: 2009SP010309

PATIENT
  Age: 57 Year
  Sex: Female

DRUGS (7)
  1. BETAMETHASONE [Suspect]
     Indication: DRUG RASH WITH EOSINOPHILIA AND SYSTEMIC SYMPTOMS
     Dosage: 5 MG;QD;PO; 0.5 MG;QD;PO
     Route: 048
     Dates: start: 20070307, end: 20070514
  2. BETAMETHASONE [Suspect]
     Indication: DRUG RASH WITH EOSINOPHILIA AND SYSTEMIC SYMPTOMS
     Dosage: 5 MG;QD;PO; 0.5 MG;QD;PO
     Route: 048
     Dates: start: 20070515
  3. PREDNISOLONE [Suspect]
     Indication: DRUG RASH WITH EOSINOPHILIA AND SYSTEMIC SYMPTOMS
     Dosage: 50 MG;QD;PO
     Route: 048
     Dates: start: 20070101, end: 20070101
  4. SOLU-MEDROL [Concomitant]
  5. VENOGLOBULIN /00025201/ [Concomitant]
  6. ALLELOCK [Concomitant]
  7. ANTEBATE [Concomitant]

REACTIONS (21)
  - ALANINE AMINOTRANSFERASE INCREASED [None]
  - ASPARTATE AMINOTRANSFERASE INCREASED [None]
  - BLISTER [None]
  - BLOOD IMMUNOGLOBULIN G DECREASED [None]
  - BLOOD LACTATE DEHYDROGENASE INCREASED [None]
  - BLOOD PRESSURE DECREASED [None]
  - BLOOD UREA INCREASED [None]
  - BUNDLE BRANCH BLOCK RIGHT [None]
  - CONDITION AGGRAVATED [None]
  - CYTOMEGALOVIRUS INFECTION [None]
  - DRUG RASH WITH EOSINOPHILIA AND SYSTEMIC SYMPTOMS [None]
  - ELECTROCARDIOGRAM ST SEGMENT ELEVATION [None]
  - EPSTEIN-BARR VIRUS ANTIBODY POSITIVE [None]
  - ERYTHEMA [None]
  - HUMAN HERPES VIRUS 6 SEROLOGY POSITIVE [None]
  - MALAISE [None]
  - PYREXIA [None]
  - RED BLOOD CELL COUNT DECREASED [None]
  - VENTRICULAR TACHYCARDIA [None]
  - VIRAL DNA TEST POSITIVE [None]
  - VIRAL MYOCARDITIS [None]
